FAERS Safety Report 7241679-9 (Version None)
Quarter: 2011Q1

REPORT INFORMATION
  Report Type: 
  Country: None (occurrence: None)
  Receive Date: 20110124
  Receipt Date: 20110112
  Transmission Date: 20110831
  Serious: Yes (Hospitalization)
  Sender: FDA-Public Use
  Company Number: PHHY2011FR02867

PATIENT
  Sex: Female

DRUGS (7)
  1. CARDIOCALM [Concomitant]
  2. AMLOR [Concomitant]
     Dosage: UNK
     Dates: start: 20101214
  3. RASILEZ HCT [Suspect]
     Dosage: 300/12.5 MG
     Route: 048
  4. ALPRAZOLAM [Concomitant]
     Indication: AFFECTIVE DISORDER
     Dosage: UNK
     Dates: start: 20101102
  5. RASILEZ HCT [Suspect]
     Dosage: 300/25 MG
     Route: 048
     Dates: start: 20101101, end: 20101213
  6. PASSIFLORA [Concomitant]
  7. DEROXAT [Suspect]
     Indication: AFFECTIVE DISORDER
     Dosage: UNK
     Dates: start: 20101210

REACTIONS (10)
  - CONFUSIONAL STATE [None]
  - HYPOCHLORAEMIA [None]
  - VOMITING [None]
  - HYPOKALAEMIA [None]
  - DIARRHOEA [None]
  - AFFECTIVE DISORDER [None]
  - DIZZINESS [None]
  - NAUSEA [None]
  - HYPONATRAEMIA [None]
  - TREMOR [None]
